FAERS Safety Report 4676394-9 (Version None)
Quarter: 2005Q2

REPORT INFORMATION
  Report Type: 
  Country: None (occurrence: None)
  Receive Date: 20050527
  Receipt Date: 20050303
  Transmission Date: 20051028
  Serious: Yes (Hospitalization)
  Sender: FDA-Public Use
  Company Number: US-GLAXOSMITHKLINE-A0548231A

PATIENT
  Sex: Female

DRUGS (2)
  1. WELLBUTRIN [Suspect]
     Indication: DEPRESSION
     Route: 048
  2. ALCOHOL [Concomitant]

REACTIONS (2)
  - DIZZINESS [None]
  - TINNITUS [None]
